FAERS Safety Report 20542495 (Version 4)
Quarter: 2022Q2

REPORT INFORMATION
  Report Type: Spontaneous
  Country: US (occurrence: US)
  Receive Date: 20220302
  Receipt Date: 20220404
  Transmission Date: 20220721
  Serious: No
  Sender: FDA-Public Use
  Company Number: US-NOVARTISTESTPH-NVSC2022US049515

PATIENT
  Sex: Female

DRUGS (4)
  1. XIIDRA [Suspect]
     Active Substance: LIFITEGRAST
     Indication: Product used for unknown indication
     Dosage: 0.2 ML, QD
     Route: 065
     Dates: start: 20220208
  2. XIIDRA [Suspect]
     Active Substance: LIFITEGRAST
     Dosage: 0.2 ML, QD
     Route: 065
     Dates: start: 20220209
  3. XIIDRA [Suspect]
     Active Substance: LIFITEGRAST
     Dosage: 0.2 ML, QD
     Route: 065
     Dates: start: 20220210
  4. XIIDRA [Suspect]
     Active Substance: LIFITEGRAST
     Dosage: 0.2 ML, QD
     Route: 065
     Dates: start: 20220211

REACTIONS (4)
  - Ocular hyperaemia [Unknown]
  - Eye irritation [Unknown]
  - Eye pruritus [Unknown]
  - Eye pain [Unknown]
